FAERS Safety Report 15638890 (Version 2)
Quarter: 2019Q1

REPORT INFORMATION
  Report Type: Spontaneous
  Country: US (occurrence: US)
  Receive Date: 20181120
  Receipt Date: 20190205
  Transmission Date: 20190417
  Serious: Yes (Hospitalization, Other)
  Sender: FDA-Public Use
  Company Number: US-PFIZER INC-2016580125

PATIENT
  Age: 49 Year
  Sex: Female
  Weight: 60 kg

DRUGS (2)
  1. RAPAMUNE [Suspect]
     Active Substance: SIROLIMUS
     Indication: RENAL TRANSPLANT
     Dosage: 1 MG, DAILY
     Route: 048
  2. RAPAMUNE [Suspect]
     Active Substance: SIROLIMUS
     Indication: IMMUNOSUPPRESSION
     Dosage: 2 MG, 1X/DAY [IN THE MORNING]
     Route: 048
     Dates: end: 20190123

REACTIONS (12)
  - Pericarditis [Unknown]
  - Loss of consciousness [Recovered/Resolved]
  - Impaired healing [Unknown]
  - Inflammation [Unknown]
  - Clostridium difficile infection [Unknown]
  - End stage renal disease [Unknown]
  - Coma [Unknown]
  - Blood creatine abnormal [Unknown]
  - Encephalitis [Unknown]
  - Disease recurrence [Unknown]
  - Renal disorder [Unknown]
  - Speech disorder [Unknown]

NARRATIVE: CASE EVENT DATE: 20181120
